FAERS Safety Report 21702169 (Version 1)
Quarter: 2022Q4

REPORT INFORMATION
  Report Type: Report from Study
  Country: US (occurrence: US)
  Receive Date: 20221208
  Receipt Date: 20221208
  Transmission Date: 20230113
  Serious: Yes (Other)
  Sender: FDA-Public Use
  Company Number: US-ABBVIE-4227947

PATIENT
  Sex: Male

DRUGS (1)
  1. HUMIRA [Suspect]
     Active Substance: ADALIMUMAB
     Indication: Hidradenitis
     Route: 058

REACTIONS (7)
  - Rhabdomyolysis [Unknown]
  - Malaise [Unknown]
  - Swollen tongue [Unknown]
  - Food allergy [Unknown]
  - Chromaturia [Unknown]
  - Drug hypersensitivity [Unknown]
  - Visual impairment [Unknown]
